FAERS Safety Report 9059522 (Version 4)
Quarter: 2013Q2

REPORT INFORMATION
  Report Type: Spontaneous
  Country: DE (occurrence: DE)
  Receive Date: 20130212
  Receipt Date: 20130620
  Transmission Date: 20140414
  Serious: Yes (Hospitalization)
  Sender: FDA-Public Use
  Company Number: DE-BIOGENIDEC-2013BI011524

PATIENT
  Age: 44 Year
  Sex: Female
  Weight: 58 kg

DRUGS (13)
  1. TYSABRI [Suspect]
     Indication: RELAPSING-REMITTING MULTIPLE SCLEROSIS
     Route: 042
     Dates: start: 20081223, end: 20100914
  2. TYSABRI [Suspect]
     Indication: RELAPSING-REMITTING MULTIPLE SCLEROSIS
     Route: 042
     Dates: start: 20101221, end: 20130103
  3. MICARDIS [Concomitant]
     Indication: HYPERTENSION
  4. ARCOXIA [Concomitant]
     Indication: PAIN
  5. VITAMIN B12 [Concomitant]
     Indication: VITAMIN B12 DEFICIENCY
  6. EUTHYROX [Concomitant]
     Indication: HYPOTHYROIDISM
  7. EUTHYROX [Concomitant]
     Indication: HYPOTHYROIDISM
  8. PANTOZOL [Concomitant]
     Indication: GASTROOESOPHAGEAL REFLUX DISEASE
  9. LACTULOSE [Concomitant]
     Indication: CONSTIPATION
  10. MICTONORM UNO [Concomitant]
     Indication: BLADDER DISORDER
  11. PRAMIPEXOL [Concomitant]
     Indication: PAIN
  12. CARBAMAZEPINE [Concomitant]
     Indication: PAIN
  13. CARBAMAZEPINE [Concomitant]
     Indication: TRIGEMINAL NEURALGIA

REACTIONS (2)
  - Dysaesthesia [Unknown]
  - Multiple sclerosis relapse [Recovered/Resolved]
